FAERS Safety Report 14145477 (Version 4)
Quarter: 2018Q3

REPORT INFORMATION
  Report Type: Spontaneous
  Country: FR (occurrence: FR)
  Receive Date: 20171031
  Receipt Date: 20180810
  Transmission Date: 20181010
  Serious: Yes (Hospitalization)
  Sender: FDA-Public Use
  Company Number: FR-PFIZER INC-2017461848

PATIENT
  Age: 73 Year
  Sex: Female
  Weight: 51 kg

DRUGS (6)
  1. TAHOR [Suspect]
     Active Substance: ATORVASTATIN CALCIUM
     Dosage: UNK
     Route: 048
     Dates: start: 20170825, end: 20170922
  2. UN?ALFA [Concomitant]
     Active Substance: ALFACALCIDOL
  3. LEVOTHYROX [Concomitant]
     Active Substance: LEVOTHYROXINE
  4. CICLETANINE HYDROCHLORIDE [Concomitant]
     Active Substance: CICLETANINE HYDROCHLORIDE
  5. KARDEGIC [Suspect]
     Active Substance: ASPIRIN DL-LYSINE
     Dosage: 160 MG, DAILY
     Route: 048
     Dates: start: 20170825
  6. MICARDIS [Suspect]
     Active Substance: TELMISARTAN
     Dosage: UNK
     Route: 048
     Dates: start: 20170825

REACTIONS (3)
  - Jaundice cholestatic [Not Recovered/Not Resolved]
  - Eosinophilia [Not Recovered/Not Resolved]
  - Hepatitis [Not Recovered/Not Resolved]

NARRATIVE: CASE EVENT DATE: 20170922
